FAERS Safety Report 20138121 (Version 1)
Quarter: 2021Q4

REPORT INFORMATION
  Report Type: Spontaneous
  Country: US (occurrence: US)
  Receive Date: 20211202
  Receipt Date: 20211202
  Transmission Date: 20220303
  Serious: No
  Sender: FDA-Public Use
  Company Number: US-ESPERION THERAPEUTICS, INC-2021USA01741

PATIENT
  Sex: Female

DRUGS (1)
  1. NEXLIZET [Suspect]
     Active Substance: BEMPEDOIC ACID\EZETIMIBE
     Indication: Blood cholesterol increased
     Dosage: 0.5 DOSAGE FORM (TABLET)
     Route: 065

REACTIONS (1)
  - Medication error [Unknown]
